FAERS Safety Report 7435570-2 (Version None)
Quarter: 2011Q2

REPORT INFORMATION
  Report Type: 
  Country: None (occurrence: None)
  Receive Date: 20110425
  Receipt Date: 20101207
  Transmission Date: 20111010
  Serious: Yes (Hospitalization, Other)
  Sender: FDA-Public Use
  Company Number: US-BAYER-201018895NA

PATIENT
  Age: 52 Year
  Sex: Female
  Weight: 95.238 kg

DRUGS (3)
  1. YASMIN [Suspect]
     Indication: MENSTRUATION IRREGULAR
     Route: 048
     Dates: start: 20061201
  2. NEXIUM [Concomitant]
     Indication: GASTROOESOPHAGEAL REFLUX DISEASE
     Dosage: 40 MG, QD
     Dates: start: 20060101
  3. FEXOFENADINE [Concomitant]
     Dosage: 180 MG, QD

REACTIONS (6)
  - PNEUMONIA [None]
  - PULMONARY EMBOLISM [None]
  - DEEP VEIN THROMBOSIS [None]
  - TACHYCARDIA [None]
  - SINUSITIS [None]
  - DYSPNOEA [None]
